FAERS Safety Report 10713161 (Version 1)
Quarter: 2015Q1

REPORT INFORMATION
  Report Type: Spontaneous
  Country: FR (occurrence: FR)
  Receive Date: 20150115
  Receipt Date: 20150115
  Transmission Date: 20150721
  Serious: Yes (Hospitalization)
  Sender: FDA-Public Use
  Company Number: FR-SA-2015SA003660

PATIENT
  Age: 82 Year
  Sex: Female

DRUGS (28)
  1. LASILIX [Suspect]
     Active Substance: FUROSEMIDE
     Indication: CARDIAC FAILURE
     Dosage: DOSE: 60 MG+ 40 MG
     Route: 048
     Dates: start: 20140706
  2. CORDARONE [Concomitant]
     Active Substance: AMIODARONE HYDROCHLORIDE
     Indication: ATRIAL FIBRILLATION
     Route: 048
     Dates: start: 20140604
  3. FUROSEMIDE. [Suspect]
     Active Substance: FUROSEMIDE
     Indication: ACUTE RESPIRATORY FAILURE
     Route: 042
     Dates: start: 20140726, end: 20140726
  4. INEXIUM [Concomitant]
     Active Substance: ESOMEPRAZOLE
     Indication: GASTRITIS
     Dosage: DOSE: 1 DF QD ON THE EVENING?INEXIUM 20 MG, ENTERIC COAT TABLET
     Route: 048
  5. LASILIX [Suspect]
     Active Substance: FUROSEMIDE
     Indication: CARDIAC FAILURE
     Dosage: DOSE: 80 MG+40 MG
     Route: 048
  6. ATARAX [Concomitant]
     Active Substance: HYDROXYZINE\HYDROXYZINE HYDROCHLORIDE
     Route: 048
     Dates: end: 20140709
  7. COUMADINE [Concomitant]
     Active Substance: WARFARIN SODIUM
     Dates: start: 20140709, end: 20140724
  8. FLUCONAZOLE. [Concomitant]
     Active Substance: FLUCONAZOLE
     Dosage: FLUCONAZOLE ARROW 100 MG CAPSULE
     Route: 048
     Dates: start: 20140704, end: 20140725
  9. PARACETAMOL [Concomitant]
     Active Substance: ACETAMINOPHEN
     Indication: PAIN
     Dates: start: 20140715
  10. LASILIX [Suspect]
     Active Substance: FUROSEMIDE
     Indication: CARDIAC FAILURE
     Route: 048
     Dates: start: 20140704
  11. LASILIX [Suspect]
     Active Substance: FUROSEMIDE
     Indication: CARDIAC FAILURE
     Dosage: DOSE: 80 MG+ 40 MG
     Route: 048
     Dates: start: 20140712, end: 20140715
  12. DUPHALAC [Concomitant]
     Active Substance: LACTULOSE
     Route: 048
  13. METOCLOPRAMIDE. [Concomitant]
     Active Substance: METOCLOPRAMIDE
     Dosage: DOSE: 1 INJECTION DAILY
     Route: 042
     Dates: start: 20140707
  14. COUMADINE [Concomitant]
     Active Substance: WARFARIN SODIUM
     Dates: end: 20140702
  15. COUMADINE [Concomitant]
     Active Substance: WARFARIN SODIUM
     Dates: start: 20140726
  16. MIANSERINE [Concomitant]
     Active Substance: MIANSERIN HYDROCHLORIDE
     Indication: DEPRESSION
     Route: 048
     Dates: start: 20140708, end: 20140724
  17. GLUCOSE [Concomitant]
     Active Substance: DEXTROSE
     Dosage: GS 500ML
     Route: 042
  18. LYRICA [Concomitant]
     Active Substance: PREGABALIN
     Dosage: 1 DF QD ON THE EVENING
     Route: 048
  19. LASILIX [Suspect]
     Active Substance: FUROSEMIDE
     Indication: CARDIAC FAILURE
     Dosage: DOSE: 40 MG+60MG
     Route: 048
     Dates: start: 201407, end: 201407
  20. LASILIX [Suspect]
     Active Substance: FUROSEMIDE
     Indication: CARDIAC FAILURE
     Route: 048
     Dates: start: 20140719
  21. FUROSEMIDE. [Suspect]
     Active Substance: FUROSEMIDE
     Indication: ACUTE RESPIRATORY FAILURE
     Dosage: FORM: BOLUS
     Route: 042
     Dates: start: 20140703
  22. FUROSEMIDE. [Suspect]
     Active Substance: FUROSEMIDE
     Indication: ACUTE RESPIRATORY FAILURE
     Route: 042
     Dates: start: 20140705
  23. FUROSEMIDE. [Suspect]
     Active Substance: FUROSEMIDE
     Indication: ACUTE RESPIRATORY FAILURE
     Route: 042
     Dates: start: 20140727, end: 20140728
  24. DIFFU K [Concomitant]
     Active Substance: POTASSIUM CHLORIDE
     Route: 048
     Dates: end: 201407
  25. LEVOTHYROX [Concomitant]
     Active Substance: LEVOTHYROXINE
     Indication: HYPOTHYROIDISM
     Dosage: FORM: SCORED TABLET
     Route: 048
     Dates: start: 20140703
  26. AUGMENTIN [Concomitant]
     Active Substance: AMOXICILLIN\CLAVULANATE POTASSIUM
     Indication: LUNG DISORDER
     Dates: start: 20140708, end: 20140718
  27. ALPRAZOLAM. [Concomitant]
     Active Substance: ALPRAZOLAM
     Dates: start: 20140709, end: 20140724
  28. OXYGEN. [Concomitant]
     Active Substance: OXYGEN

REACTIONS (3)
  - Hyponatraemia [Not Recovered/Not Resolved]
  - Dehydration [Not Recovered/Not Resolved]
  - Acute kidney injury [Not Recovered/Not Resolved]

NARRATIVE: CASE EVENT DATE: 201407
